FAERS Safety Report 4915258-X (Version None)
Quarter: 2006Q1

REPORT INFORMATION
  Report Type: 
  Country: None (occurrence: None)
  Receive Date: 20060216
  Receipt Date: 20060216
  Transmission Date: 20060701
  Serious: Yes (Hospitalization)
  Sender: FDA-Public Use
  Company Number: None

PATIENT
  Sex: Female
  Weight: 55.7924 kg

DRUGS (13)
  1. ZAROXOLYN [Suspect]
     Dosage: 2.5 MG  (1/2 TAB) PO QOD    PRIOR TO ADMISSION
     Route: 048
  2. INSULIN [Concomitant]
  3. FOSAMAX [Concomitant]
  4. PAXIL [Concomitant]
  5. ATENOLOL [Concomitant]
  6. NORVASC [Concomitant]
  7. DICYCLOMINE [Concomitant]
  8. FOLIC ACID [Concomitant]
  9. LIPITOR [Concomitant]
  10. DEMADEX [Concomitant]
  11. IMDUR [Concomitant]
  12. FEOSOL [Concomitant]
  13. NEURONTIN [Concomitant]

REACTIONS (1)
  - HYPOKALAEMIA [None]
